FAERS Safety Report 6052981-0 (Version None)
Quarter: 2009Q1

REPORT INFORMATION
  Report Type: 
  Country: None (occurrence: None)
  Receive Date: 20090127
  Receipt Date: 20081028
  Transmission Date: 20090719
  Serious: No
  Sender: FDA-Public Use
  Company Number: US-ABBOTT-08P-163-0484149-00

PATIENT
  Sex: Male

DRUGS (2)
  1. LUPRON DEPOT [Suspect]
     Indication: PROSTATE CANCER
     Route: 050
     Dates: start: 20080801
  2. BICALUTAMIDE [Suspect]
     Indication: PROSTATE CANCER
     Route: 048

REACTIONS (6)
  - ASTHENIA [None]
  - BREAST SWELLING [None]
  - DIZZINESS [None]
  - LIBIDO DECREASED [None]
  - PRURITUS [None]
  - RASH [None]
